FAERS Safety Report 15105183 (Version 1)
Quarter: 2018Q3

REPORT INFORMATION
  Report Type: Spontaneous
  Country: IT (occurrence: IT)
  Receive Date: 20180704
  Receipt Date: 20180704
  Transmission Date: 20181010
  Serious: Yes (Other)
  Sender: FDA-Public Use
  Company Number: IT-TEVA-2018-IT-918885

PATIENT
  Age: 22 Year
  Sex: Male

DRUGS (3)
  1. MYFENAX [Suspect]
     Active Substance: MYCOPHENOLATE MOFETIL
     Indication: IMMUNOSUPPRESSION
     Dosage: 1000 MILLIGRAM DAILY;
     Route: 048
     Dates: start: 20160801, end: 20160812
  2. URSODEOXYCHOLIC ACID [Concomitant]
     Active Substance: URSODIOL
     Route: 048
  3. TACROLIMUS. [Concomitant]
     Active Substance: TACROLIMUS
     Route: 048

REACTIONS (3)
  - Abdominal pain upper [Recovered/Resolved]
  - Vertigo [Recovered/Resolved]
  - Q fever [Recovered/Resolved]

NARRATIVE: CASE EVENT DATE: 20160812
